FAERS Safety Report 5964507-8 (Version None)
Quarter: 2008Q4

REPORT INFORMATION
  Report Type: 
  Country: None (occurrence: None)
  Receive Date: 20081125
  Receipt Date: 20081105
  Transmission Date: 20090506
  Serious: Yes (Hospitalization)
  Sender: FDA-Public Use
  Company Number: JP-JNJFOC-20081001284

PATIENT
  Sex: Male
  Weight: 45 kg

DRUGS (4)
  1. ITRIZOLE [Suspect]
     Indication: BRONCHOPULMONARY ASPERGILLOSIS
     Dosage: 200 MG TWICE A DAY
     Route: 048
  2. ITRACONAZOLE [Suspect]
     Indication: BRONCHOPULMONARY ASPERGILLOSIS
     Route: 041
  3. GASMOTIN [Concomitant]
     Indication: ANOREXIA
     Route: 048
  4. URSO 250 [Concomitant]
     Indication: BILIARY CIRRHOSIS PRIMARY
     Route: 048

REACTIONS (5)
  - DECREASED APPETITE [None]
  - ELECTROCARDIOGRAM QT PROLONGED [None]
  - HEADACHE [None]
  - MALAISE [None]
  - PSEUDOALDOSTERONISM [None]
